FAERS Safety Report 7734638-0 (Version None)
Quarter: 2011Q3

REPORT INFORMATION
  Report Type: 
  Country: None (occurrence: None)
  Receive Date: 20110907
  Receipt Date: 20110901
  Transmission Date: 20111222
  Serious: Yes (Hospitalization, Disabling)
  Sender: FDA-Public Use
  Company Number: GB-MERCK-1108GBR00093

PATIENT
  Age: 67 Year
  Sex: Male
  Weight: 76 kg

DRUGS (7)
  1. ITRACONAZOLE [Suspect]
     Indication: ONYCHOMYCOSIS
     Route: 048
     Dates: start: 20110705, end: 20110727
  2. BISOPROLOL [Concomitant]
     Route: 065
     Dates: start: 20101201
  3. RAMIPRIL [Concomitant]
     Route: 065
     Dates: start: 20101201
  4. ZOCOR [Suspect]
     Indication: HYPERCHOLESTEROLAEMIA
     Route: 048
     Dates: start: 20101201, end: 20110802
  5. FUROSEMIDE [Concomitant]
     Route: 065
     Dates: start: 20101201
  6. ASPIRIN [Concomitant]
     Route: 065
     Dates: start: 20101201
  7. TAMSULOSIN HYDROCHLORIDE [Concomitant]
     Route: 065
     Dates: start: 20090101

REACTIONS (4)
  - MYOSITIS [None]
  - BLOOD CREATINE PHOSPHOKINASE INCREASED [None]
  - MYALGIA [None]
  - DRUG INTERACTION [None]
